FAERS Safety Report 9307876 (Version 2)
Quarter: 2013Q2

REPORT INFORMATION
  Report Type: Spontaneous
  Country: AU (occurrence: AU)
  Receive Date: 20130524
  Receipt Date: 20130610
  Transmission Date: 20140414
  Serious: Yes (Other)
  Sender: FDA-Public Use
  Company Number: AU-AMGEN-AUSSP2013035529

PATIENT
  Age: 83 Year
  Sex: Male

DRUGS (3)
  1. XGEVA [Suspect]
     Indication: METASTASES TO BONE
     Dosage: 120 MG, QMO
     Route: 058
     Dates: start: 20120201
  2. VITAMIN D                          /00107901/ [Concomitant]
  3. CALCIUM [Concomitant]

REACTIONS (8)
  - Skin cancer [Recovered/Resolved]
  - Ear neoplasm malignant [Unknown]
  - Neoplasm malignant [Unknown]
  - Head and neck cancer [Unknown]
  - Disease progression [Not Recovered/Not Resolved]
  - Mass [Not Recovered/Not Resolved]
  - Pain [Unknown]
  - Pruritus [Unknown]
